FAERS Safety Report 24298483 (Version 1)
Quarter: 2024Q3

REPORT INFORMATION
  Report Type: Spontaneous
  Country: US (occurrence: US)
  Receive Date: 20240909
  Receipt Date: 20240909
  Transmission Date: 20241016
  Serious: No
  Sender: GILEAD
  Company Number: US-GILEAD-2024-0686313

PATIENT
  Age: 59 Year
  Sex: Female

DRUGS (1)
  1. TRODELVY [Suspect]
     Active Substance: SACITUZUMAB GOVITECAN-HZIY
     Indication: Hormone receptor positive HER2 negative breast cancer
     Dosage: 700 MG IN 500 ML SALINE
     Route: 042

REACTIONS (1)
  - Infusion site inflammation [Unknown]

NARRATIVE: CASE EVENT DATE: 20240901
